FAERS Safety Report 24667991 (Version 4)
Quarter: 2025Q2

REPORT INFORMATION
  Report Type: Spontaneous
  Country: CA (occurrence: CA)
  Receive Date: 20241127
  Receipt Date: 20250604
  Transmission Date: 20250716
  Serious: Yes (Other)
  Sender: INTERCEPT PHARMACEUTICALS
  Company Number: CA-ADVANZ PHARMA-202411009684

PATIENT
  Age: 69 Year
  Sex: Female

DRUGS (3)
  1. OCALIVA [Suspect]
     Active Substance: OBETICHOLIC ACID
     Indication: Primary biliary cholangitis
     Dosage: 5 MG, QD  (OCALIVA)
     Route: 048
     Dates: start: 20241110
  2. PLAVIX [Concomitant]
     Active Substance: CLOPIDOGREL BISULFATE
  3. METOPROLOL [Concomitant]
     Active Substance: METOPROLOL

REACTIONS (7)
  - Loss of consciousness [Unknown]
  - Malaise [Recovering/Resolving]
  - Fatigue [Unknown]
  - Oropharyngeal pain [Recovered/Resolved]
  - Abdominal discomfort [Unknown]
  - Pruritus [Not Recovered/Not Resolved]
  - Rash [Not Recovered/Not Resolved]

NARRATIVE: CASE EVENT DATE: 20250401
